FAERS Safety Report 10239894 (Version 1)
Quarter: 2014Q2

REPORT INFORMATION
  Report Type: Spontaneous
  Country: US (occurrence: US)
  Receive Date: 20140616
  Receipt Date: 20140616
  Transmission Date: 20141212
  Serious: Yes (Hospitalization, Other)
  Sender: FDA-Public Use
  Company Number: US-FRI-1000068098

PATIENT
  Age: 60 Year
  Sex: Female

DRUGS (9)
  1. DALIRESP [Suspect]
     Indication: CHRONIC OBSTRUCTIVE PULMONARY DISEASE
     Dosage: 500 MCG
     Route: 048
  2. ADVAIR [Concomitant]
  3. COMBIVENT [Concomitant]
  4. METHYLPREDNISOLONE [Concomitant]
  5. NASONEX [Concomitant]
  6. SPIRIVA [Concomitant]
  7. NEXIUM [Concomitant]
     Indication: GASTROOESOPHAGEAL REFLUX DISEASE
  8. ESCITALOPRAM [Concomitant]
     Indication: DEPRESSION
  9. ESCITALOPRAM [Concomitant]
     Indication: ANXIETY

REACTIONS (3)
  - Asthma [Recovered/Resolved]
  - Atrial fibrillation [Recovered/Resolved]
  - Ventricular extrasystoles [Not Recovered/Not Resolved]
